FAERS Safety Report 19033906 (Version 1)
Quarter: 2021Q1

REPORT INFORMATION
  Report Type: Spontaneous
  Country: US (occurrence: US)
  Receive Date: 20210319
  Receipt Date: 20210319
  Transmission Date: 20210420
  Serious: No
  Sender: FDA-Public Use
  Company Number: NVSC2021US062311

PATIENT
  Age: 70 Year
  Sex: Male

DRUGS (3)
  1. TEGRETOL [Suspect]
     Active Substance: CARBAMAZEPINE
     Indication: PRODUCT USED FOR UNKNOWN INDICATION
     Dosage: UNK
     Route: 065
  2. VRAYLAR [Interacting]
     Active Substance: CARIPRAZINE
     Indication: MANIA
     Dosage: 1.5 MG (DURATION 3 DAYS)
     Route: 065
  3. VRAYLAR [Interacting]
     Active Substance: CARIPRAZINE
     Indication: BIPOLAR DISORDER
     Dosage: 3 MG (DURATION 4 DAYS)
     Route: 065

REACTIONS (2)
  - Drug interaction [Unknown]
  - Akathisia [Unknown]
